FAERS Safety Report 16342413 (Version 1)
Quarter: 2019Q2

REPORT INFORMATION
  Report Type: Spontaneous
  Country: US (occurrence: US)
  Receive Date: 20190522
  Receipt Date: 20190522
  Transmission Date: 20190711
  Serious: No
  Sender: FDA-Public Use
  Company Number: US-ASTRAZENECA-2019SE65656

PATIENT
  Sex: Male

DRUGS (1)
  1. FASENRA [Suspect]
     Active Substance: BENRALIZUMAB
     Indication: ASTHMA
     Dosage: UNKNOWN DOSE, EVERY EIGHT WEEKS
     Route: 058
     Dates: start: 201805

REACTIONS (4)
  - Respiratory disorder [Unknown]
  - Wheezing [Unknown]
  - Drug ineffective [Unknown]
  - Dyspnoea [Unknown]
